FAERS Safety Report 4384900-7 (Version None)
Quarter: 2004Q2

REPORT INFORMATION
  Report Type: 
  Country: None (occurrence: None)
  Receive Date: 20040622
  Receipt Date: 20040607
  Transmission Date: 20050107
  Serious: Yes (Other)
  Sender: FDA-Public Use
  Company Number: FR-JNJFOC-20040602733

PATIENT
  Age: 20 Year
  Sex: Female

DRUGS (3)
  1. TOPIRAMATE [Suspect]
     Indication: EPILEPSY
     Dosage: SEE IMAGE
     Route: 048
  2. DI-HYDAN (PHENYTOIN) [Concomitant]
  3. URBANYL (CLOBAZAM) [Concomitant]

REACTIONS (6)
  - ATONIC URINARY BLADDER [None]
  - CONDITION AGGRAVATED [None]
  - GLAUCOMA [None]
  - OVERDOSE [None]
  - SOMNOLENCE [None]
  - URINARY RETENTION [None]
